FAERS Safety Report 6676118-X (Version None)
Quarter: 2010Q2

REPORT INFORMATION
  Report Type: 
  Country: None (occurrence: None)
  Receive Date: 20100412
  Receipt Date: 20100329
  Transmission Date: 20101027
  Serious: No
  Sender: FDA-Public Use
  Company Number: US-B.I. PHARMACEUTICALS,INC./RIDGEFIELD-2010-BP-01981BP

PATIENT
  Sex: Female

DRUGS (7)
  1. CLONIDINE HCL [Suspect]
     Indication: HYPERTENSION
  2. DIOVAN [Concomitant]
     Indication: HYPERTENSION
  3. PREMARIN [Concomitant]
  4. PRAVASTATIN [Concomitant]
  5. DICLOFENAC SODIUM [Concomitant]
  6. VITAMIN D [Concomitant]
  7. MULTI-VITAMIN [Concomitant]

REACTIONS (1)
  - HYPERTENSION [None]
